FAERS Safety Report 7365877-9 (Version None)
Quarter: 2011Q1

REPORT INFORMATION
  Report Type: 
  Country: None (occurrence: None)
  Receive Date: 20110322
  Receipt Date: 20090528
  Transmission Date: 20110831
  Serious: Yes (Other)
  Sender: FDA-Public Use
  Company Number: US-BAYER-200921789NA

PATIENT
  Sex: Female
  Weight: 72.562 kg

DRUGS (27)
  1. FRESH FROZEN PLASMA [Concomitant]
     Dosage: 4 U, UNK
     Dates: start: 20060310
  2. CAPTOPRIL [Concomitant]
     Dosage: 25 MG, TID
     Route: 048
     Dates: start: 20060308
  3. CAPOTEN [Concomitant]
     Dosage: 625 MG, TID
     Route: 048
     Dates: start: 20060308
  4. PRIMACOR [Concomitant]
     Dosage: UNK
     Route: 042
     Dates: start: 20060310, end: 20060310
  5. TRASYLOL [Suspect]
     Indication: AORTIC VALVE REPLACEMENT
  6. ASPIRIN [Concomitant]
     Dosage: 81 MG, QD
     Route: 048
     Dates: start: 20060308
  7. QUESTRAN [Concomitant]
     Dosage: 4 MG, BID
     Route: 048
  8. BLOOD AND RELATED PRODUCTS [Concomitant]
     Dosage: 1200 ML, UNK
     Dates: start: 20060310
  9. TRASYLOL [Suspect]
     Indication: CARDIAC OPERATION
     Dosage: 200 ML FOLLOWED BY 50ML /HOUR IV X 8.5 HOURS
     Route: 042
     Dates: start: 20060310, end: 20060310
  10. RED BLOOD CELLS [Concomitant]
     Dosage: 9 U, UNK
     Dates: start: 20060310
  11. PLATELETS [Concomitant]
     Dosage: 4 PACKS
     Dates: start: 20060310
  12. CRYOPRECIPITATES [Concomitant]
     Dosage: 10 U, UNK
     Dates: start: 20060310
  13. CIPRO [Concomitant]
     Dosage: UNK
     Dates: start: 20060320
  14. VISIPAQUE [Concomitant]
     Dosage: 5-10 ML
     Dates: start: 20060310
  15. ANCEF [Concomitant]
     Dosage: UNK
     Route: 042
     Dates: start: 20060310, end: 20060310
  16. HEPARIN [Concomitant]
     Dosage: UNK
     Route: 042
     Dates: start: 20060310, end: 20060310
  17. TRASYLOL [Suspect]
     Indication: CORONARY ARTERY BYPASS
  18. OMNIPAQUE 140 [Concomitant]
     Indication: ARTERIOGRAM
     Dosage: 5-10 ML
     Dates: start: 20060309
  19. LOVASTATIN [Concomitant]
     Dosage: 40 MG, HS
     Route: 048
     Dates: start: 20060308, end: 20060309
  20. DILTIAZEM [Concomitant]
     Dosage: 120 MG, QD
     Route: 048
     Dates: start: 20060308
  21. PROTAMINE SULFATE [Concomitant]
     Dosage: UNK
     Route: 042
     Dates: start: 20060310, end: 20060310
  22. NEO-SYNEPHRINOL [Concomitant]
     Dosage: UNK
     Route: 041
     Dates: start: 20060310, end: 20060310
  23. LEVOPHED [Concomitant]
     Dosage: UNK
     Route: 041
     Dates: start: 20060310, end: 20060310
  24. ZOSYN [Concomitant]
     Dosage: UNK
     Dates: start: 20060320
  25. NIFEDIPINE [Concomitant]
     Dosage: 80 MG, QD
     Route: 048
     Dates: start: 20060101
  26. LOPRESSOR [Concomitant]
     Dosage: 25 MG, TID
     Route: 048
     Dates: start: 20060308, end: 20060309
  27. INSULIN [Concomitant]
     Dosage: UNK
     Route: 042
     Dates: start: 20060310, end: 20060310

REACTIONS (5)
  - RENAL FAILURE [None]
  - INJURY [None]
  - PAIN [None]
  - RENAL FAILURE ACUTE [None]
  - UNEVALUABLE EVENT [None]
